FAERS Safety Report 19970449 (Version 1)
Quarter: 2021Q4

REPORT INFORMATION
  Report Type: Spontaneous
  Country: US (occurrence: IN)
  Receive Date: 20211019
  Receipt Date: 20211019
  Transmission Date: 20220303
  Serious: Yes (Hospitalization)
  Sender: FDA-Public Use
  Company Number: US-LUPIN PHARMACEUTICALS INC.-2021-19786

PATIENT
  Age: 28 Year
  Sex: Male

DRUGS (17)
  1. CEFUROXIME [Suspect]
     Active Substance: CEFUROXIME
     Indication: Hepatitis B
     Dosage: 500 MILLIGRAM
     Route: 065
  2. CEFUROXIME [Suspect]
     Active Substance: CEFUROXIME
     Indication: Hepatitis E
  3. LAMIVUDINE [Suspect]
     Active Substance: LAMIVUDINE
     Indication: Hepatitis B
     Dosage: 100 MILLIGRAM, QD
     Route: 065
  4. ALBUMIN HUMAN [Suspect]
     Active Substance: ALBUMIN HUMAN
     Indication: Hepatitis B
     Dosage: 100 MILLILITER, QD (AS REPORTED, DOSAGE: FOR FIRST 2 MONTHS OF HOSPITALISATION)
     Route: 042
  5. ALBUMIN HUMAN [Suspect]
     Active Substance: ALBUMIN HUMAN
     Indication: Hepatitis E
  6. GLYCYRRHIZIN [Suspect]
     Active Substance: GLYCYRRHIZIN
     Indication: Hepatitis B
     Dosage: 60 MILLILITER, QD
     Route: 042
  7. GLYCYRRHIZIN [Suspect]
     Active Substance: GLYCYRRHIZIN
     Indication: Hepatitis E
     Dosage: 60 MILLILITER; DOSAGE: REDUCED TO 3 TIMES A WEEK
     Route: 042
  8. FUROSEMIDE\SPIRONOLACTONE [Suspect]
     Active Substance: FUROSEMIDE\SPIRONOLACTONE
     Indication: Hepatitis B
     Dosage: UNK, QD; DOSAGE: 50 TO 75 MG PER DAY
     Route: 065
  9. FUROSEMIDE\SPIRONOLACTONE [Suspect]
     Active Substance: FUROSEMIDE\SPIRONOLACTONE
     Indication: Hepatitis E
  10. THUJA [Suspect]
     Active Substance: HOMEOPATHICS
     Indication: Hepatitis B
     Dosage: UNK, QD ; DOSAGE: 30C 2 PILLS ONCE EVERY EVENING
     Route: 065
  11. THUJA [Suspect]
     Active Substance: HOMEOPATHICS
     Indication: Hepatitis E
  12. ATROPA BELLADONNA\HOMEOPATHICS [Suspect]
     Active Substance: ATROPA BELLADONNA\HOMEOPATHICS
     Indication: Hepatitis B
     Dosage: UNK, PRN (DOSAGE: 3C ALTERNATING WITH SILYBUM-MARIANUM MOTHER TINCTURE EVERY 10 MINUTES AS NEEDED FO
     Route: 065
  13. ATROPA BELLADONNA\HOMEOPATHICS [Suspect]
     Active Substance: ATROPA BELLADONNA\HOMEOPATHICS
     Indication: Hepatitis E
  14. CHELIDONIUM MAJUS [Suspect]
     Active Substance: CHELIDONIUM MAJUS
     Indication: Hepatitis B
     Dosage: UNK, DOSAGE: 6X 3 DROPS ALTERNATING 3 TIMES A DAY
  15. CHELIDONIUM MAJUS [Suspect]
     Active Substance: CHELIDONIUM MAJUS
     Indication: Hepatitis E
  16. LYCOPODIUM CLAVATUM [Suspect]
     Active Substance: HOMEOPATHICS
     Indication: Hepatitis B
     Dosage: UNK, DOSAGE:30C 3 DROPS 3 TIMES A DAY
     Route: 065
  17. LYCOPODIUM CLAVATUM [Suspect]
     Active Substance: HOMEOPATHICS
     Indication: Hepatitis E

REACTIONS (1)
  - Drug ineffective [Unknown]
